FAERS Safety Report 17466182 (Version 1)
Quarter: 2020Q1

REPORT INFORMATION
  Report Type: Spontaneous
  Country: CA (occurrence: CA)
  Receive Date: 20200227
  Receipt Date: 20200227
  Transmission Date: 20200409
  Serious: Yes (Other)
  Sender: FDA-Public Use
  Company Number: CA-TEVA-2020-CA-1189517

PATIENT
  Sex: Male

DRUGS (8)
  1. PENTASA [Suspect]
     Active Substance: MESALAMINE
     Dosage: 2 TO 4 GRAMS
     Route: 065
     Dates: start: 20160716
  2. PREDNISONE. [Suspect]
     Active Substance: PREDNISONE
     Dosage: TAPERING 15 MILLIGRAM
     Route: 065
     Dates: start: 20181015, end: 20181106
  3. METHOTREXATE. [Suspect]
     Active Substance: METHOTREXATE
     Route: 065
     Dates: start: 20181106, end: 2019
  4. PREDNISONE. [Suspect]
     Active Substance: PREDNISONE
     Dosage: 40 MILLIGRAM STOP DATE: 2018/2019
     Route: 065
     Dates: start: 20191106
  5. PREDNISONE. [Suspect]
     Active Substance: PREDNISONE
     Dosage: 25 MILLIGRAM
     Route: 065
     Dates: start: 20160516, end: 2016
  6. PREDNISONE. [Suspect]
     Active Substance: PREDNISONE
     Dosage: 10 MG
     Route: 065
     Dates: start: 20160505, end: 20160516
  7. PREDNISONE. [Suspect]
     Active Substance: PREDNISONE
     Dosage: 35 MILLIGRAM FOR 3 WEEKS THEN SLOW TAPER
     Route: 065
     Dates: start: 20190227
  8. PENTASA [Suspect]
     Active Substance: MESALAMINE
     Dosage: 2 GRAM
     Route: 065
     Dates: end: 2013

REACTIONS (4)
  - Haematochezia [Unknown]
  - Diarrhoea [Unknown]
  - Job dissatisfaction [Unknown]
  - Drug resistance [Unknown]
